FAERS Safety Report 12360024 (Version 2)
Quarter: 2016Q3

REPORT INFORMATION
  Report Type: Spontaneous
  Country: BR (occurrence: BR)
  Receive Date: 20160512
  Receipt Date: 20160729
  Transmission Date: 20161109
  Serious: Yes (Other)
  Sender: FDA-Public Use
  Company Number: BR-JNJFOC-20160506378

PATIENT
  Age: 60 Year
  Sex: Female

DRUGS (3)
  1. XARELTO [Suspect]
     Active Substance: RIVAROXABAN
     Indication: ARRHYTHMIA
     Route: 048
  2. XARELTO [Suspect]
     Active Substance: RIVAROXABAN
     Indication: ARRHYTHMIA
     Route: 048
  3. PEPRAZOL [Concomitant]
     Route: 065

REACTIONS (14)
  - Influenza [Unknown]
  - Asthenia [Unknown]
  - Diarrhoea [Unknown]
  - Thrombosis [Not Recovered/Not Resolved]
  - Micturition disorder [Not Recovered/Not Resolved]
  - Decreased appetite [Not Recovered/Not Resolved]
  - Anaemia postoperative [Unknown]
  - Off label use [Unknown]
  - Viral infection [Unknown]
  - Diverticulitis [Unknown]
  - Anaemia [Unknown]
  - Intestinal haemorrhage [Unknown]
  - Cyst removal [Unknown]
  - Syncope [Not Recovered/Not Resolved]

NARRATIVE: CASE EVENT DATE: 20160429
